FAERS Safety Report 15232560 (Version 1)
Quarter: 2018Q3

REPORT INFORMATION
  Report Type: Spontaneous
  Country: IR (occurrence: IR)
  Receive Date: 20180802
  Receipt Date: 20180802
  Transmission Date: 20181010
  Serious: Yes (Hospitalization)
  Sender: FDA-Public Use
  Company Number: PHHY2018IR058609

PATIENT
  Age: 25 Year
  Sex: Female

DRUGS (3)
  1. INTERFERON BETA?1B [Suspect]
     Active Substance: INTERFERON BETA-1B
     Indication: MULTIPLE SCLEROSIS
     Dosage: 1 ML, UNK (0.25 MG)
     Route: 058
  2. LACTULOSE. [Concomitant]
     Active Substance: LACTULOSE
     Indication: HEPATIC ENCEPHALOPATHY
     Route: 065
  3. METRONIDAZOLE. [Concomitant]
     Active Substance: METRONIDAZOLE
     Indication: HEPATIC ENCEPHALOPATHY
     Route: 065

REACTIONS (7)
  - Thrombotic thrombocytopenic purpura [Unknown]
  - Cognitive disorder [Not Recovered/Not Resolved]
  - Depressed level of consciousness [Recovering/Resolving]
  - Haemolytic uraemic syndrome [Unknown]
  - Hepatic enzyme increased [Unknown]
  - Coma [Recovered/Resolved]
  - Muscle spasms [Recovered/Resolved]
